FAERS Safety Report 9803397 (Version 1)
Quarter: 2014Q1

REPORT INFORMATION
  Report Type: Spontaneous
  Country: US (occurrence: US)
  Receive Date: 20140108
  Receipt Date: 20140108
  Transmission Date: 20141002
  Serious: Yes (Hospitalization)
  Sender: FDA-Public Use
  Company Number: PHEH2014US000572

PATIENT
  Age: 40 Year
  Sex: Female
  Weight: 38.55 kg

DRUGS (3)
  1. SANDOSTATIN [Suspect]
     Dosage: UNK UKN, UNK
     Dates: end: 201311
  2. SUTENT [Suspect]
     Indication: RENAL CELL CARCINOMA
     Dosage: 50 MG, DAILY
     Route: 048
     Dates: start: 20131016, end: 201311
  3. GABAPENTIN [Concomitant]
     Indication: SCIATIC NERVE NEUROPATHY
     Dosage: 300 MG

REACTIONS (4)
  - Cholecystitis infective [Recovered/Resolved]
  - Cholecystitis [Recovered/Resolved]
  - Dehydration [Unknown]
  - Nausea [Recovered/Resolved]
